FAERS Safety Report 6174728-X (Version None)
Quarter: 2009Q2

REPORT INFORMATION
  Report Type: 
  Country: None (occurrence: None)
  Receive Date: 20090430
  Receipt Date: 20081003
  Transmission Date: 20091009
  Serious: No
  Sender: FDA-Public Use
  Company Number: US-ASTRAZENECA-2008UW18167

PATIENT
  Sex: Male

DRUGS (15)
  1. NEXIUM [Suspect]
     Route: 048
     Dates: start: 20080829
  2. LANOXIN [Concomitant]
  3. ATACAND [Concomitant]
  4. LASIX [Concomitant]
  5. CARTIA XT [Concomitant]
  6. WARFARIN [Concomitant]
  7. GLIPIZIDE [Concomitant]
  8. COREG [Concomitant]
  9. AVODART [Concomitant]
  10. METFORMIN HCL [Concomitant]
  11. CAL-MAG [Concomitant]
  12. FISH OIL [Concomitant]
  13. VITAMIN D [Concomitant]
  14. BIOTEN [Concomitant]
  15. CALCIUM [Concomitant]

REACTIONS (2)
  - FATIGUE [None]
  - FREQUENT BOWEL MOVEMENTS [None]
